FAERS Safety Report 5810403-6 (Version None)
Quarter: 2008Q3

REPORT INFORMATION
  Report Type: 
  Country: None (occurrence: None)
  Receive Date: 20080715
  Receipt Date: 20080617
  Transmission Date: 20090109
  Serious: Yes (Other)
  Sender: FDA-Public Use
  Company Number: JP-PFIZER INC-2008057542

PATIENT
  Age: 79 Year
  Sex: Female

DRUGS (4)
  1. LIPITOR [Suspect]
     Indication: HYPERCHOLESTEROLAEMIA
     Dosage: DAILY DOSE:10MG
     Route: 048
  2. CYANOCOBALAMIN [Concomitant]
  3. JUVELA NICOTINATE [Concomitant]
     Dates: start: 20080616
  4. DRUG, UNSPECIFIED [Concomitant]

REACTIONS (3)
  - HYPOAESTHESIA [None]
  - MALAISE [None]
  - PAIN IN EXTREMITY [None]
